FAERS Safety Report 8160758-5 (Version None)
Quarter: 2012Q1

REPORT INFORMATION
  Report Type: 
  Country: None (occurrence: None)
  Receive Date: 20120223
  Receipt Date: 20120214
  Transmission Date: 20120608
  Serious: Yes (Other)
  Sender: FDA-Public Use
  Company Number: PHHY2012FR004721

PATIENT
  Sex: Male
  Weight: 85 kg

DRUGS (10)
  1. ONBREZ [Suspect]
     Indication: CHRONIC OBSTRUCTIVE PULMONARY DISEASE
     Dosage: 150 UG, QD
     Dates: start: 20110727
  2. TRIVASTAL [Concomitant]
     Dosage: UNK
     Dates: start: 20100607
  3. TRIVASTAL [Concomitant]
     Indication: PARKINSON'S DISEASE
  4. TRIMEPRAZINE TARTRATE [Concomitant]
     Indication: SLEEP DISORDER
     Dosage: 5 MG, QD
     Route: 048
  5. DEPAKENE [Concomitant]
     Indication: EPILEPSY
     Dosage: 1000 MG, QD
     Route: 048
     Dates: start: 20090616
  6. SELEGILINE [Concomitant]
     Indication: PARKINSON'S DISEASE
     Dosage: UNK
     Route: 048
     Dates: start: 20100607
  7. BECLOMETHASONE DIPROPIONATE [Concomitant]
     Indication: CHRONIC OBSTRUCTIVE PULMONARY DISEASE
     Dosage: 400 UG, UNK
     Dates: start: 20040702
  8. SPIRIVA [Suspect]
     Indication: CHRONIC OBSTRUCTIVE PULMONARY DISEASE
     Dosage: 18 UG, QD
     Dates: start: 20061115
  9. OXAZEPAM [Concomitant]
     Indication: ANXIETY
  10. ZOLPIDEM [Concomitant]
     Indication: SLEEP DISORDER
     Dosage: 10 MG, QD
     Route: 048
     Dates: start: 20110928

REACTIONS (2)
  - INTRAOCULAR PRESSURE INCREASED [None]
  - OCULAR HYPERTENSION [None]
